FAERS Safety Report 24061752 (Version 1)
Quarter: 2024Q3

REPORT INFORMATION
  Report Type: Spontaneous
  Country: US (occurrence: US)
  Receive Date: 20240708
  Receipt Date: 20240708
  Transmission Date: 20241017
  Serious: No
  Sender: ABBVIE
  Company Number: US-ABBVIE-5830551

PATIENT
  Sex: Female

DRUGS (1)
  1. CELEXA [Suspect]
     Active Substance: CITALOPRAM HYDROBROMIDE
     Indication: Product used for unknown indication
     Dosage: STRENGTH: 40MG
     Route: 048
     Dates: start: 20091231, end: 202307

REACTIONS (2)
  - Feeling abnormal [Unknown]
  - Unevaluable event [Unknown]
